FAERS Safety Report 24683778 (Version 2)
Quarter: 2024Q4

REPORT INFORMATION
  Report Type: Spontaneous
  Country: FR (occurrence: FR)
  Receive Date: 20241202
  Receipt Date: 20241205
  Transmission Date: 20250115
  Serious: Yes (Other)
  Sender: TAKEDA
  Company Number: FR-EVENT-000683

PATIENT
  Age: 30 Year

DRUGS (1)
  1. ICLUSIG [Suspect]
     Active Substance: PONATINIB HYDROCHLORIDE
     Indication: Chronic myeloid leukaemia
     Dosage: 15 MILLIGRAM, 3/WEEK

REACTIONS (3)
  - Intestinal ischaemia [Unknown]
  - Cystic fibrosis [Unknown]
  - Mesenteric arterial occlusion [Unknown]
